FAERS Safety Report 9144560 (Version 3)
Quarter: 2017Q4

REPORT INFORMATION
  Report Type: Spontaneous
  Country: US (occurrence: US)
  Receive Date: 20130306
  Receipt Date: 20171221
  Transmission Date: 20180321
  Serious: Yes (Hospitalization, Other)
  Sender: FDA-Public Use
  Company Number: US-009507513-1303USA002301

PATIENT
  Sex: Female

DRUGS (4)
  1. FOSAMAX [Suspect]
     Active Substance: ALENDRONATE SODIUM
     Indication: OSTEOPENIA
     Dosage: 10 MG, QD
     Route: 048
     Dates: start: 199901, end: 200110
  2. FOSAMAX [Suspect]
     Active Substance: ALENDRONATE SODIUM
     Indication: OSTEOPENIA
     Dosage: 70 MG, UNK
     Route: 048
     Dates: start: 200110, end: 200804
  3. ALENDRONATE SODIUM. [Suspect]
     Active Substance: ALENDRONATE SODIUM
     Indication: OSTEOPENIA
     Dosage: 70 MG, UNK
     Route: 048
     Dates: start: 20080416, end: 20100628
  4. VITAMINS (UNSPECIFIED) [Concomitant]
     Active Substance: VITAMINS
     Indication: PRODUCT USED FOR UNKNOWN INDICATION
     Dosage: 1 DF, QD
     Route: 065
     Dates: start: 2000

REACTIONS (32)
  - Femur fracture [Unknown]
  - Gastrooesophageal reflux disease [Unknown]
  - Nephrolithiasis [Unknown]
  - Acute sinusitis [Unknown]
  - Heart rate increased [Unknown]
  - Dizziness [Unknown]
  - Body tinea [Unknown]
  - Fall [Unknown]
  - Calculus urinary [Unknown]
  - Gastrointestinal ulcer [Unknown]
  - Nausea [Unknown]
  - Rhinitis allergic [Unknown]
  - Femur fracture [Unknown]
  - Sacroiliitis [Unknown]
  - Dizziness [Unknown]
  - Gastric ulcer [Unknown]
  - Fall [Unknown]
  - Sleep disorder [Unknown]
  - Abdominal pain [Unknown]
  - Cough [Unknown]
  - Pharyngitis [Unknown]
  - Inflammation [Unknown]
  - Osteoporosis [Unknown]
  - Compression fracture [Unknown]
  - Decreased appetite [Unknown]
  - Back pain [Unknown]
  - Gastrooesophageal reflux disease [Unknown]
  - Cataract [Unknown]
  - Hypertension [Unknown]
  - Diarrhoea [Unknown]
  - Gastroenteritis [Unknown]
  - Back pain [Unknown]

NARRATIVE: CASE EVENT DATE: 20000418
